FAERS Safety Report 13740561 (Version 1)
Quarter: 2017Q3

REPORT INFORMATION
  Report Type: Spontaneous
  Country: US (occurrence: US)
  Receive Date: 20170711
  Receipt Date: 20170711
  Transmission Date: 20171127
  Serious: No
  Sender: FDA-Public Use
  Company Number: US-ORCHID HEALTHCARE-2023186

PATIENT
  Age: 62 Year
  Sex: Female
  Weight: 45.46 kg

DRUGS (1)
  1. TERBINAFINE HYDROCHLORIDE. [Suspect]
     Active Substance: TERBINAFINE HYDROCHLORIDE
     Indication: ONYCHOMYCOSIS
     Route: 048
     Dates: start: 201609, end: 20170131

REACTIONS (3)
  - Incorrect drug administration duration [Recovered/Resolved]
  - Dysgeusia [Recovering/Resolving]
  - Parosmia [Recovering/Resolving]

NARRATIVE: CASE EVENT DATE: 201609
